FAERS Safety Report 7284436-X (Version None)
Quarter: 2011Q1

REPORT INFORMATION
  Report Type: 
  Country: None (occurrence: None)
  Receive Date: 20110209
  Receipt Date: 20110121
  Transmission Date: 20110831
  Serious: Yes (Hospitalization)
  Sender: FDA-Public Use
  Company Number: PHHY2011AU05085

PATIENT
  Sex: Male

DRUGS (2)
  1. CLOZARIL [Suspect]
     Dosage: 600 MG, UNK
     Dates: start: 20031006, end: 20101201
  2. CLOZARIL [Suspect]
     Dosage: UNK
     Dates: start: 20101201

REACTIONS (1)
  - SCHIZOPHRENIA [None]
